FAERS Safety Report 6988138-6 (Version None)
Quarter: 2010Q3

REPORT INFORMATION
  Report Type: 
  Country: None (occurrence: None)
  Receive Date: 20100916
  Receipt Date: 20100910
  Transmission Date: 20110219
  Serious: Yes (Life-Threatening)
  Sender: FDA-Public Use
  Company Number: JP-ROCHE-647899

PATIENT
  Sex: Male
  Weight: 60 kg

DRUGS (18)
  1. TOCILIZUMAB [Suspect]
     Indication: RHEUMATOID ARTHRITIS
     Route: 041
     Dates: start: 20090529, end: 20090529
  2. TOCILIZUMAB [Suspect]
     Route: 041
     Dates: start: 20090626, end: 20090626
  3. PREDONINE [Concomitant]
     Route: 048
     Dates: start: 20090422, end: 20090506
  4. PREDONINE [Concomitant]
     Route: 048
     Dates: start: 20090507, end: 20090513
  5. PREDONINE [Concomitant]
     Route: 048
     Dates: start: 20090514, end: 20090520
  6. PREDONINE [Concomitant]
     Route: 048
     Dates: start: 20090521, end: 20090527
  7. PREDONINE [Concomitant]
     Route: 048
     Dates: start: 20090528, end: 20090610
  8. PREDONINE [Concomitant]
     Route: 048
     Dates: start: 20090611, end: 20090624
  9. PREDONINE [Concomitant]
     Route: 048
     Dates: start: 20090625, end: 20090708
  10. PREDONINE [Concomitant]
     Route: 048
     Dates: start: 20090709, end: 20090714
  11. PREDONINE [Concomitant]
     Route: 048
     Dates: start: 20090715, end: 20090718
  12. PREDONINE [Concomitant]
     Route: 048
     Dates: start: 20090719, end: 20090723
  13. PREDONINE [Concomitant]
     Route: 048
     Dates: start: 20090724, end: 20090728
  14. CELECOXIB [Concomitant]
     Dosage: DRUG: CELECOX.
     Route: 048
     Dates: start: 20090528
  15. BREDININ [Concomitant]
     Route: 048
     Dates: start: 20090527, end: 20090618
  16. LOBU [Concomitant]
     Route: 048
     Dates: start: 20090713, end: 20090720
  17. WARFARIN SODIUM [Concomitant]
     Route: 048
     Dates: start: 20090528, end: 20090709
  18. WARFARIN SODIUM [Concomitant]
     Route: 048
     Dates: start: 20090710

REACTIONS (3)
  - ABSCESS [None]
  - DISSEMINATED INTRAVASCULAR COAGULATION [None]
  - SEPSIS [None]
